FAERS Safety Report 7605352-7 (Version None)
Quarter: 2011Q3

REPORT INFORMATION
  Report Type: 
  Country: None (occurrence: None)
  Receive Date: 20110713
  Receipt Date: 20110701
  Transmission Date: 20111222
  Serious: Yes (Other)
  Sender: FDA-Public Use
  Company Number: GB-ELI_LILLY_AND_COMPANY-GB201107000159

PATIENT
  Age: 16 Year
  Sex: Female
  Weight: 54.8 kg

DRUGS (1)
  1. STRATTERA [Suspect]
     Indication: DISTURBANCE IN ATTENTION
     Dosage: 25 MG, UNK
     Route: 048
     Dates: start: 20110608, end: 20110614

REACTIONS (4)
  - HAEMATURIA [None]
  - VOMITING [None]
  - TACHYCARDIA [None]
  - DIZZINESS [None]
